FAERS Safety Report 24580303 (Version 5)
Quarter: 2025Q4

REPORT INFORMATION
  Report Type: Report from Study
  Country: GB (occurrence: GB)
  Receive Date: 20241105
  Receipt Date: 20251218
  Transmission Date: 20260118
  Serious: Yes (Hospitalization, Other)
  Sender: TAKEDA
  Company Number: GB-TAKEDA-2024TUS110731

PATIENT
  Age: 60 Year
  Sex: Female

DRUGS (10)
  1. TEDUGLUTIDE [Suspect]
     Active Substance: TEDUGLUTIDE
     Indication: Short-bowel syndrome
     Dosage: 4.4 MILLIGRAM, QD
     Dates: start: 20230621, end: 20230905
  2. TEDUGLUTIDE [Suspect]
     Active Substance: TEDUGLUTIDE
     Dosage: 4.2 MILLIGRAM, QD
     Dates: start: 20230905, end: 20240222
  3. TEDUGLUTIDE [Suspect]
     Active Substance: TEDUGLUTIDE
  4. TEDUGLUTIDE [Suspect]
     Active Substance: TEDUGLUTIDE
  5. ALFACALCIDOL [Concomitant]
     Active Substance: ALFACALCIDOL
     Indication: Vitamin D deficiency
     Dosage: 1 MICROGRAM, QD
     Dates: start: 20220101
  6. FERROUS SULFATE [Concomitant]
     Active Substance: FERROUS SULFATE
     Indication: Iron deficiency
     Dosage: 200 MILLIGRAM, BID
     Dates: start: 2019
  7. MERCAPTOPURINE [Concomitant]
     Active Substance: MERCAPTOPURINE
     Indication: Crohn^s disease
     Dosage: 50 MILLIGRAM, QD
  8. CITALOPRAM [Concomitant]
     Active Substance: CITALOPRAM
     Dosage: 20 MILLIGRAM, QD
  9. LOPERAMIDE [Concomitant]
     Active Substance: LOPERAMIDE
     Indication: Prophylaxis
     Dosage: 2 MILLIGRAM
  10. THYROXINE [Concomitant]
     Active Substance: LEVOTHYROXINE
     Indication: Prophylaxis
     Dosage: 125 MICROGRAM, QD

REACTIONS (1)
  - Squamous cell carcinoma of the vulva [Recovered/Resolved]

NARRATIVE: CASE EVENT DATE: 20240201
